FAERS Safety Report 12487235 (Version 1)
Quarter: 2016Q2

REPORT INFORMATION
  Report Type: Spontaneous
  Country: DE (occurrence: DE)
  Receive Date: 20160622
  Receipt Date: 20160622
  Transmission Date: 20160815
  Serious: Yes (Congenital Anomaly)
  Sender: FDA-Public Use
  Company Number: GXKR2016DE002805

PATIENT

DRUGS (8)
  1. SPIRONOLACTONE. [Suspect]
     Active Substance: SPIRONOLACTONE
     Indication: PRIMARY HYPERALDOSTERONISM
     Dosage: 50 [MG/D ]
     Route: 064
     Dates: start: 20150421, end: 20151214
  2. METOPROLOL. [Suspect]
     Active Substance: METOPROLOL
     Indication: PRIMARY HYPERALDOSTERONISM
     Dosage: 200 [MG/D ]
     Route: 064
     Dates: start: 20150421, end: 20151214
  3. HYDROCHLOROTHIAZIDE. [Concomitant]
     Active Substance: HYDROCHLOROTHIAZIDE
     Indication: HYPERTENSIVE HEART DISEASE
     Route: 064
     Dates: start: 20150421, end: 20150525
  4. METHYLDOPA. [Suspect]
     Active Substance: METHYLDOPA
     Indication: HYPERTENSIVE HEART DISEASE
     Dosage: 1500 [MG/D ]
     Route: 064
     Dates: start: 20150525, end: 20151214
  5. AMLODIPINE [Concomitant]
     Active Substance: AMLODIPINE BESYLATE
     Indication: PRIMARY HYPERALDOSTERONISM
     Dosage: 10 [MG/D (2 X 5) ]
     Route: 064
     Dates: start: 20150421, end: 20150528
  6. BETAMETHASONE. [Concomitant]
     Active Substance: BETAMETHASONE
     Indication: MATERNAL THERAPY TO ENHANCE FOETAL LUNG MATURITY
     Route: 064
     Dates: start: 20151209, end: 20151209
  7. RAMIPRIL. [Concomitant]
     Active Substance: RAMIPRIL
     Indication: HYPERTENSIVE HEART DISEASE
     Dosage: 2.5 [MG/D ]
     Route: 064
     Dates: start: 20150421, end: 20150526
  8. TORASEMIDE [Concomitant]
     Active Substance: TORSEMIDE
     Indication: HYPERTENSIVE HEART DISEASE
     Dosage: 2.5 [MG/D ]
     Route: 064
     Dates: start: 20150421, end: 20150526

REACTIONS (2)
  - Atrial septal defect [Unknown]
  - Patent ductus arteriosus [Recovered/Resolved]

NARRATIVE: CASE EVENT DATE: 20151214
